FAERS Safety Report 8117658-6 (Version None)
Quarter: 2012Q1

REPORT INFORMATION
  Report Type: 
  Country: None (occurrence: None)
  Receive Date: 20120203
  Receipt Date: 20120203
  Transmission Date: 20120608
  Serious: Yes (Other)
  Sender: FDA-Public Use
  Company Number: None

PATIENT
  Sex: Male

DRUGS (2)
  1. LITHIUM CARBONATE [Suspect]
     Indication: PSYCHOTIC DISORDER
     Dosage: 600MG HS PO
     Route: 048
     Dates: start: 20120117
  2. LITHIUM CARBONATE [Suspect]
     Dosage: 450MG QAM PO
     Route: 048

REACTIONS (1)
  - BLOOD THYROID STIMULATING HORMONE INCREASED [None]
